FAERS Safety Report 4727725-2 (Version None)
Quarter: 2005Q3

REPORT INFORMATION
  Report Type: 
  Country: None (occurrence: None)
  Receive Date: 20050727
  Receipt Date: 20050715
  Transmission Date: 20060218
  Serious: Yes (Hospitalization)
  Sender: FDA-Public Use
  Company Number: 2005-03-1576

PATIENT
  Age: 32 Year
  Sex: Female

DRUGS (8)
  1. CLARITIN REDITABS [Suspect]
     Indication: RHINITIS ALLERGIC
     Dosage: 10 MG ORAL
     Route: 048
     Dates: start: 20050312, end: 20050316
  2. FLOMOX (CEFCAPENE PIVOXIL HCL) [Suspect]
     Indication: INFLUENZA
     Dosage: 300 MG ORAL
     Route: 048
     Dates: start: 20050316, end: 20050317
  3. ACETAMINOPHEN [Suspect]
     Indication: INFLUENZA
     Dosage: 400 MG ORAL
     Route: 048
     Dates: start: 20050316, end: 20050317
  4. TRANSAMIN CAPSULES [Concomitant]
  5. TAMIFLU [Concomitant]
  6. VITAMIN B1 INJ [Concomitant]
  7. OSELTAMIVIR [Concomitant]
  8. FOSMICIN [Concomitant]

REACTIONS (8)
  - ARTHRALGIA [None]
  - CONDITION AGGRAVATED [None]
  - KERATITIS [None]
  - LIVER DISORDER [None]
  - LYMPHOCYTE STIMULATION TEST POSITIVE [None]
  - MOUTH HAEMORRHAGE [None]
  - STEVENS-JOHNSON SYNDROME [None]
  - THIRST [None]
